FAERS Safety Report 10240905 (Version 1)
Quarter: 2014Q2

REPORT INFORMATION
  Report Type: Report from Study
  Country: GB (occurrence: GB)
  Receive Date: 20140617
  Receipt Date: 20140617
  Transmission Date: 20141212
  Serious: Yes (Hospitalization)
  Sender: FDA-Public Use
  Company Number: GB-ROCHE-1416531

PATIENT
  Sex: Female
  Weight: 60 kg

DRUGS (1)
  1. TOCILIZUMAB [Suspect]
     Indication: RHEUMATOID ARTHRITIS
     Dosage: DATE OF LAST DOSE PRIOR TO SAE 10/JAN/2014
     Route: 065
     Dates: start: 20140110, end: 20140215

REACTIONS (8)
  - Blood potassium decreased [Unknown]
  - Diarrhoea [Unknown]
  - Neutropenic sepsis [Recovered/Resolved]
  - Neutropenia [Unknown]
  - Myocardial ischaemia [Unknown]
  - Abscess [Unknown]
  - Atrial fibrillation [Unknown]
  - Diabetic foot infection [Unknown]
